FAERS Safety Report 5262879-3 (Version None)
Quarter: 2007Q1

REPORT INFORMATION
  Report Type: 
  Country: None (occurrence: None)
  Receive Date: 20070312
  Receipt Date: 20070228
  Transmission Date: 20070707
  Serious: Yes (Death, Hospitalization)
  Sender: FDA-Public Use
  Company Number: IL-NOVOPROD-260657

PATIENT
  Age: 80 Year
  Sex: Male
  Weight: 75 kg

DRUGS (11)
  1. NOVOSEVEN [Suspect]
     Indication: HAEMORRHAGE
     Dosage: 7.2 MG, SINGLE
     Route: 042
     Dates: start: 20070202, end: 20070202
  2. BLOOD CELLS, PACKED HUMAN [Concomitant]
     Dosage: 27 U, UNK
     Dates: start: 20070202
  3. FRESH FROZEN PLASMA [Concomitant]
     Dosage: 13 - 15U, UNK
     Dates: start: 20070202
  4. PLATELETS [Concomitant]
     Dosage: 6X6
     Dates: start: 20070202
  5. CRYOPRECIPITATES [Concomitant]
     Dosage: 10 U, UNK
     Dates: start: 20070202
  6. VASOPRESSIN [Concomitant]
     Dosage: UNKNOWN
     Dates: start: 20070202
  7. NORADRENALIN                       /00127501/ [Concomitant]
     Dosage: UNKNOWN
     Dates: start: 20070202
  8. ISOKET [Concomitant]
     Dosage: UNKNOWM
  9. HALIDOL [Concomitant]
     Dosage: UNKNOWN
  10. ASPIRIN [Concomitant]
     Dosage: UNKNOWN
  11. ZOPICLONE [Concomitant]
     Dosage: UNKNOWN

REACTIONS (2)
  - INTESTINAL ISCHAEMIA [None]
  - MULTI-ORGAN FAILURE [None]
